FAERS Safety Report 13921504 (Version 2)
Quarter: 2017Q4

REPORT INFORMATION
  Report Type: Spontaneous
  Country: GB (occurrence: GB)
  Receive Date: 20170830
  Receipt Date: 20171016
  Transmission Date: 20180320
  Serious: Yes (Death, Hospitalization, Other)
  Sender: FDA-Public Use
  Company Number: GB-JNJFOC-20170824581

PATIENT
  Age: 53 Year
  Sex: Female

DRUGS (1)
  1. RISPERDAL CONSTA [Suspect]
     Active Substance: RISPERIDONE
     Indication: SCHIZOPHRENIA
     Route: 030
     Dates: start: 2013, end: 201708

REACTIONS (4)
  - Liver function test abnormal [Not Recovered/Not Resolved]
  - Sepsis [Fatal]
  - Jaundice [Unknown]
  - Ovarian cancer [Fatal]

NARRATIVE: CASE EVENT DATE: 201708
